FAERS Safety Report 5884514-3 (Version None)
Quarter: 2008Q3

REPORT INFORMATION
  Report Type: 
  Country: None (occurrence: None)
  Receive Date: 20080911
  Receipt Date: 20080827
  Transmission Date: 20090109
  Serious: Yes (Death, Other)
  Sender: FDA-Public Use
  Company Number: 280002L08JPN

PATIENT

DRUGS (3)
  1. UROFOLLITROPIN [Suspect]
     Indication: ASSISTED FERTILISATION
     Dosage: TRANSPLACENTAL
     Route: 064
  2. CLOMIPHENE CITRATE [Suspect]
     Indication: ASSISTED FERTILISATION
     Dosage: TRANSPLACENTAL
     Route: 064
  3. CABERGOLINE [Concomitant]

REACTIONS (11)
  - ABORTION THREATENED [None]
  - CAESAREAN SECTION [None]
  - FOETAL GROWTH RETARDATION [None]
  - HOLOPROSENCEPHALY [None]
  - INTRA-UTERINE DEATH [None]
  - LIMB HYPOPLASIA CONGENITAL [None]
  - MATERNAL DRUGS AFFECTING FOETUS [None]
  - OLIGOHYDRAMNIOS [None]
  - PREMATURE BABY [None]
  - PULMONARY HYPOPLASIA [None]
  - TWIN PREGNANCY [None]
